FAERS Safety Report 4999999-4 (Version None)
Quarter: 2006Q2

REPORT INFORMATION
  Report Type: 
  Country: None (occurrence: None)
  Receive Date: 20060501
  Receipt Date: 20060418
  Transmission Date: 20061013
  Serious: Yes (Hospitalization)
  Sender: FDA-Public Use
  Company Number: 2006052458

PATIENT
  Age: 71 Year
  Sex: Female

DRUGS (1)
  1. ARTHROTEC [Suspect]
     Indication: MYALGIA
     Dosage: (PRN), ORAL
     Route: 048
     Dates: end: 20060122

REACTIONS (1)
  - ANAPHYLACTIC SHOCK [None]
